FAERS Safety Report 23592561 (Version 1)
Quarter: 2024Q1

REPORT INFORMATION
  Report Type: Spontaneous
  Country: IT (occurrence: IT)
  Receive Date: 20240304
  Receipt Date: 20240304
  Transmission Date: 20240410
  Serious: Yes (Hospitalization)
  Sender: FDA-Public Use
  Company Number: None

PATIENT
  Age: 36 Year
  Sex: Female

DRUGS (2)
  1. LITHIUM CARBONATE [Suspect]
     Active Substance: LITHIUM CARBONATE
     Indication: Depression
     Route: 048
     Dates: start: 20240117, end: 20240117
  2. VALPROIC ACID [Suspect]
     Active Substance: VALPROIC ACID
     Indication: Epilepsy
     Dosage: ACIDO VALPROICO
     Route: 048
     Dates: start: 20240117, end: 20240117

REACTIONS (2)
  - Toxicity to various agents [Recovering/Resolving]
  - Hypotonia [Recovering/Resolving]

NARRATIVE: CASE EVENT DATE: 20240117
